FAERS Safety Report 17945538 (Version 2)
Quarter: 2020Q2

REPORT INFORMATION
  Report Type: Spontaneous
  Country: DE (occurrence: DE)
  Receive Date: 20200625
  Receipt Date: 20200630
  Transmission Date: 20200714
  Serious: Yes (Hospitalization)
  Sender: FDA-Public Use
  Company Number: NVSC2020DE176772

PATIENT
  Age: 67 Year
  Sex: Male
  Weight: 76 kg

DRUGS (8)
  1. CARBOPLATIN. [Suspect]
     Active Substance: CARBOPLATIN
     Dosage: DATE OF LAST DOSE (4 MG/MIN X ML) ADMINISTERED OF CARBOPLATIN PRIOR TO AE
     Route: 042
     Dates: start: 20200309
  2. CARBOPLATIN. [Suspect]
     Active Substance: CARBOPLATIN
     Indication: NON-SMALL CELL LUNG CANCER METASTATIC
     Dosage: DATE OF LAST DOSE (4 MG/MIN X ML) ADMINISTERED OF CARBOPLATIN PRIOR TO AE: 09/MAR/2020
     Route: 042
     Dates: start: 20200106
  3. PACLITAXEL. [Suspect]
     Active Substance: PACLITAXEL
     Indication: NON-SMALL CELL LUNG CANCER METASTATIC
     Dosage: UNK UNK, QW (DATE OF LAST DOSE (190 MG/M2) ADMINISTERED OF NAB-PACLITAXEL PRIOR TO AE: 09 MAR 2020)
     Route: 042
     Dates: start: 20200106
  4. ATEZOLIZUMAB. [Suspect]
     Active Substance: ATEZOLIZUMAB
     Indication: NON-SMALL CELL LUNG CANCER METASTATIC
     Dosage: DATE OF LAST DOSE (1200 MG) ADMINISTERED OF ATEZOLIZUMAB PRIOR TO AE: 09/MAR/2020
     Route: 042
     Dates: start: 20200106
  5. PACLITAXEL. [Suspect]
     Active Substance: PACLITAXEL
     Dosage: 190 MG/M2
     Route: 042
     Dates: start: 20200323
  6. ATEZOLIZUMAB. [Suspect]
     Active Substance: ATEZOLIZUMAB
     Dosage: 1200 MG
     Route: 042
     Dates: start: 20200309
  7. PACLITAXEL. [Suspect]
     Active Substance: PACLITAXEL
     Dosage: 190 MG/M2
     Route: 042
     Dates: start: 20200309
  8. NOVALGIN [Concomitant]
     Indication: PRODUCT USED FOR UNKNOWN INDICATION
     Dosage: 30 ML
     Route: 061

REACTIONS (2)
  - COVID-19 [Not Recovered/Not Resolved]
  - Pneumonitis [Not Recovered/Not Resolved]

NARRATIVE: CASE EVENT DATE: 20200402
